FAERS Safety Report 24829293 (Version 1)
Quarter: 2025Q1

REPORT INFORMATION
  Report Type: Other
  Country: US (occurrence: US)
  Receive Date: 20250110
  Receipt Date: 20250110
  Transmission Date: 20250408
  Serious: Yes (Death, Hospitalization)
  Sender: ANI
  Company Number: US-ANIPHARMA-015345

PATIENT
  Age: 51 Year
  Sex: Female

DRUGS (2)
  1. LACTULOSE [Suspect]
     Active Substance: LACTULOSE
     Indication: Cirrhosis alcoholic
  2. TERLIPRESSIN [Concomitant]
     Active Substance: TERLIPRESSIN
     Indication: Hepatorenal syndrome

REACTIONS (1)
  - Drug ineffective [Fatal]
